FAERS Safety Report 19636937 (Version 1)
Quarter: 2021Q3

REPORT INFORMATION
  Report Type: Spontaneous
  Country: US (occurrence: US)
  Receive Date: 20210730
  Receipt Date: 20210730
  Transmission Date: 20211014
  Serious: Yes (Other)
  Sender: FDA-Public Use
  Company Number: US-PFIZER INC-202100911549

PATIENT
  Age: 72 Year
  Sex: Female
  Weight: 68.93 kg

DRUGS (1)
  1. IBRANCE [Suspect]
     Active Substance: PALBOCICLIB
     Indication: BREAST CANCER FEMALE
     Dosage: 125 MG, DAILY
     Route: 048
     Dates: end: 20210517

REACTIONS (6)
  - Tremor [Unknown]
  - Nervousness [Unknown]
  - Paraesthesia [Unknown]
  - Neoplasm progression [Unknown]
  - Loss of personal independence in daily activities [Unknown]
  - Balance disorder [Unknown]
